FAERS Safety Report 10522161 (Version 2)
Quarter: 2014Q4

REPORT INFORMATION
  Report Type: Spontaneous
  Country: US (occurrence: US)
  Receive Date: 20141016
  Receipt Date: 20141231
  Transmission Date: 20150528
  Serious: Yes (Other)
  Sender: FDA-Public Use
  Company Number: US-PFIZER INC-2014284329

PATIENT
  Age: 67 Year
  Sex: Female
  Weight: 99.77 kg

DRUGS (2)
  1. LYRICA [Suspect]
     Active Substance: PREGABALIN
     Dosage: 75 FOR 2 WEEKS
     Dates: start: 2009
  2. LYRICA [Suspect]
     Active Substance: PREGABALIN
     Dosage: 3-150/DAY + 1-75/NIGHT
     Dates: start: 2009

REACTIONS (2)
  - Burning sensation [Unknown]
  - Weight increased [Not Recovered/Not Resolved]
